FAERS Safety Report 9314374 (Version 2)
Quarter: 2013Q2

REPORT INFORMATION
  Report Type: Spontaneous
  Country: ES (occurrence: ES)
  Receive Date: 20130529
  Receipt Date: 20130607
  Transmission Date: 20140414
  Serious: Yes (Other)
  Sender: FDA-Public Use
  Company Number: ES-UCBSA-086883

PATIENT
  Age: 86 Year
  Sex: Male

DRUGS (4)
  1. VIMPAT [Suspect]
     Indication: EPILEPSY
     Dates: start: 20130327, end: 201304
  2. VIMPAT [Suspect]
     Indication: EPILEPSY
     Dates: start: 20130322, end: 201303
  3. KEPPRA [Concomitant]
     Dosage: DOSE: 1000-0-1500 MG
  4. DIGOXIN [Concomitant]
     Dosage: DOSE: 250 MICROGRAMS

REACTIONS (3)
  - Heart rate decreased [Unknown]
  - Bradyphrenia [Unknown]
  - Somnolence [Unknown]
